FAERS Safety Report 7084789-1 (Version None)
Quarter: 2010Q4

REPORT INFORMATION
  Report Type: 
  Country: None (occurrence: None)
  Receive Date: 20101105
  Receipt Date: 20101028
  Transmission Date: 20110411
  Serious: Yes (Hospitalization)
  Sender: FDA-Public Use
  Company Number: US-BIOGENIDEC-2010BI033464

PATIENT
  Age: 65 Year
  Sex: Female

DRUGS (3)
  1. AVONEX [Suspect]
     Indication: MULTIPLE SCLEROSIS
     Route: 030
     Dates: start: 20011221
  2. AVONEX [Suspect]
     Route: 030
     Dates: start: 20080710
  3. MECLIZINE [Concomitant]

REACTIONS (7)
  - CATARACT [None]
  - CORONARY ARTERY BYPASS [None]
  - DIZZINESS [None]
  - FALL [None]
  - MIGRAINE [None]
  - PHOTOPSIA [None]
  - SYNCOPE [None]
